FAERS Safety Report 13098850 (Version 1)
Quarter: 2017Q1

REPORT INFORMATION
  Report Type: Spontaneous
  Country: FR (occurrence: FR)
  Receive Date: 20170109
  Receipt Date: 20170109
  Transmission Date: 20170428
  Serious: Yes (Congenital Anomaly)
  Sender: FDA-Public Use
  Company Number: FR-ABBVIE-17K-056-1829391-00

PATIENT
  Sex: Female

DRUGS (1)
  1. HUMIRA [Suspect]
     Active Substance: ADALIMUMAB
     Indication: MATERNAL EXPOSURE TIMING UNSPECIFIED
     Route: 064

REACTIONS (4)
  - Benign neoplasm of spinal cord [Not Recovered/Not Resolved]
  - Caudal regression syndrome [Unknown]
  - Foetal exposure during pregnancy [Unknown]
  - Congenital spinal cord anomaly [Not Recovered/Not Resolved]
